FAERS Safety Report 4737203-2 (Version None)
Quarter: 2005Q3

REPORT INFORMATION
  Report Type: 
  Country: None (occurrence: None)
  Receive Date: 20050728
  Receipt Date: 20050516
  Transmission Date: 20060218
  Serious: No
  Sender: FDA-Public Use
  Company Number: 200514241US

PATIENT
  Sex: Female

DRUGS (3)
  1. KETEK [Suspect]
     Indication: SINUSITIS
  2. SINUS MEDICATIONS NOS [Concomitant]
  3. COLD MEDICATIONS NOS [Concomitant]

REACTIONS (1)
  - URTICARIA GENERALISED [None]
